FAERS Safety Report 13727397 (Version 1)
Quarter: 2017Q3

REPORT INFORMATION
  Report Type: Spontaneous
  Country: US (occurrence: US)
  Receive Date: 20170707
  Receipt Date: 20170707
  Transmission Date: 20171127
  Serious: Yes (Hospitalization, Other)
  Sender: FDA-Public Use
  Company Number: US-GLAXOSMITHKLINE-US2017104121

PATIENT
  Sex: Female

DRUGS (19)
  1. ALPRAZOLAM. [Concomitant]
     Active Substance: ALPRAZOLAM
  2. PROMETRIUM [Concomitant]
     Active Substance: PROGESTERONE
  3. ARIPIPRAZOLE. [Concomitant]
     Active Substance: ARIPIPRAZOLE
  4. AZATHIOPRINE. [Concomitant]
     Active Substance: AZATHIOPRINE
  5. MYRBETRIQ [Concomitant]
     Active Substance: MIRABEGRON
  6. ALBUTEROL INHALER [Concomitant]
     Active Substance: ALBUTEROL
  7. ESCITALOPRAM [Concomitant]
     Active Substance: ESCITALOPRAM OXALATE
  8. POTASSIUM CHLORIDE. [Concomitant]
     Active Substance: POTASSIUM CHLORIDE
  9. QUETIAPINE. [Concomitant]
     Active Substance: QUETIAPINE
  10. VITAMIN C [Concomitant]
     Active Substance: ASCORBIC ACID
  11. FLEXERIL [Concomitant]
     Active Substance: CYCLOBENZAPRINE HYDROCHLORIDE
  12. PLAQUENIL [Concomitant]
     Active Substance: HYDROXYCHLOROQUINE SULFATE
  13. BENLYSTA [Suspect]
     Active Substance: BELIMUMAB
     Indication: SYSTEMIC LUPUS ERYTHEMATOSUS
     Dosage: UNK UNK, Z
     Route: 042
     Dates: start: 20170531
  14. AVAPRO [Concomitant]
     Active Substance: IRBESARTAN
  15. CELEBREX [Concomitant]
     Active Substance: CELECOXIB
  16. BUPROPION. [Concomitant]
     Active Substance: BUPROPION
  17. FUROSEMIDE. [Concomitant]
     Active Substance: FUROSEMIDE
  18. RESTASIS [Concomitant]
     Active Substance: CYCLOSPORINE
  19. SYNTHROID [Concomitant]
     Active Substance: LEVOTHYROXINE SODIUM

REACTIONS (8)
  - Pulmonary sepsis [Recovered/Resolved]
  - Headache [Recovered/Resolved]
  - Nausea [Recovered/Resolved]
  - Haematemesis [Recovered/Resolved]
  - Pyrexia [Recovered/Resolved]
  - Fatigue [Recovering/Resolving]
  - Vomiting [Recovered/Resolved]
  - Sepsis [Recovered/Resolved]
